FAERS Safety Report 9284726 (Version 2)
Quarter: 2013Q2

REPORT INFORMATION
  Report Type: Spontaneous
  Country: US (occurrence: US)
  Receive Date: 20130513
  Receipt Date: 20130531
  Transmission Date: 20140414
  Serious: Yes (Other)
  Sender: FDA-Public Use
  Company Number: US-BIOGENIDEC-2013BI041506

PATIENT
  Sex: Female

DRUGS (21)
  1. TYSABRI [Suspect]
     Indication: MULTIPLE SCLEROSIS
     Route: 042
     Dates: start: 20110817
  2. AVONEX [Concomitant]
     Indication: MULTIPLE SCLEROSIS
     Route: 030
     Dates: start: 20080620
  3. BACLOFEN [Concomitant]
     Route: 048
  4. CLONAZEPAM [Concomitant]
     Route: 048
  5. CYMBALTA [Concomitant]
     Route: 048
  6. DEXILANT [Concomitant]
     Route: 048
  7. FIORICET [Concomitant]
  8. IBUPROFEN [Concomitant]
  9. LAMICTAL [Concomitant]
  10. LEVETIRACETAM [Concomitant]
     Route: 048
  11. MIRAPEX [Concomitant]
     Route: 048
  12. MULTIVITAMIN [Concomitant]
     Route: 048
  13. NORTRIPTYLINE [Concomitant]
     Route: 048
  14. PRAVACHOL [Concomitant]
     Route: 048
  15. SUDAFED [Concomitant]
  16. TRAZODONE [Concomitant]
     Route: 048
  17. TRILEPTAL [Concomitant]
     Route: 048
  18. TYLENOL [Concomitant]
  19. TYLENOL WITH CODEINE #3 [Concomitant]
     Route: 048
  20. VIIBRYD [Concomitant]
     Route: 048
  21. VIMPAT [Concomitant]
     Route: 048

REACTIONS (2)
  - Epilepsy [Not Recovered/Not Resolved]
  - Poor venous access [Not Recovered/Not Resolved]
